FAERS Safety Report 4568073-3 (Version None)
Quarter: 2005Q1

REPORT INFORMATION
  Report Type: 
  Country: None (occurrence: None)
  Receive Date: 20050202
  Receipt Date: 20050126
  Transmission Date: 20050727
  Serious: Yes (Other)
  Sender: FDA-Public Use
  Company Number: US-BRISTOL-MYERS SQUIBB COMPANY-12839304

PATIENT
  Age: 66 Year
  Sex: Male

DRUGS (4)
  1. ERBITUX [Suspect]
     Indication: COLORECTAL CANCER METASTATIC
     Dosage: INITIAL DOSE 400 MG/M2 18-JAN-05: STOPPED, RESUMED AT 90 ML/HR, 2ND DOSE 25-JAN-05
     Route: 042
     Dates: start: 20050118
  2. CPT-11 [Concomitant]
  3. DECADRON [Concomitant]
     Indication: PREMEDICATION
     Route: 042
     Dates: start: 20050118, end: 20050118
  4. BENADRYL [Concomitant]
     Indication: PREMEDICATION
     Route: 042
     Dates: start: 20050118, end: 20050118

REACTIONS (2)
  - CYANOSIS [None]
  - FEELING ABNORMAL [None]
